FAERS Safety Report 7223896-7 (Version None)
Quarter: 2011Q1

REPORT INFORMATION
  Report Type: 
  Country: None (occurrence: None)
  Receive Date: 20110113
  Receipt Date: 20110106
  Transmission Date: 20110831
  Serious: Yes (Other)
  Sender: FDA-Public Use
  Company Number: 2006BI016984

PATIENT
  Age: 31 Year
  Sex: Female

DRUGS (1)
  1. AVONEX [Suspect]
     Indication: MULTIPLE SCLEROSIS
     Route: 030
     Dates: start: 20060726, end: 20090608

REACTIONS (5)
  - DRUG INEFFECTIVE [None]
  - THROAT IRRITATION [None]
  - CERVIX CARCINOMA [None]
  - BREAST PAIN [None]
  - STRESS [None]
